FAERS Safety Report 4567846-0 (Version None)
Quarter: 2005Q1

REPORT INFORMATION
  Report Type: 
  Country: None (occurrence: None)
  Receive Date: 20050128
  Receipt Date: 20040906
  Transmission Date: 20050727
  Serious: Yes (Hospitalization)
  Sender: FDA-Public Use
  Company Number: GXKR2004GB00670

PATIENT
  Age: 54 Year
  Sex: Female

DRUGS (2)
  1. LISINOPRIL [Suspect]
     Indication: VENTRICULAR FAILURE
  2. LOSARTAN (LOSARTAN) [Concomitant]

REACTIONS (3)
  - COUGH [None]
  - POST PROCEDURAL COMPLICATION [None]
  - WOUND DEHISCENCE [None]
